FAERS Safety Report 4268053-1 (Version None)
Quarter: 2004Q1

REPORT INFORMATION
  Report Type: 
  Country: None (occurrence: None)
  Receive Date: 20040109
  Receipt Date: 20040109
  Transmission Date: 20041129
  Serious: Yes (Hospitalization)
  Sender: FDA-Public Use
  Company Number: None

PATIENT
  Sex: Female

DRUGS (4)
  1. GEMCITABINE [Suspect]
     Indication: BILE DUCT CANCER
     Dosage: 1000MG/M2 INTRAVENOUS
     Route: 042
     Dates: start: 20031209, end: 20040106
  2. IRINOTECAN [Suspect]
     Indication: BILE DUCT CANCER
     Dosage: 100 MG/M2 INTRAVENOUS
     Route: 042
     Dates: start: 20031209, end: 20040106
  3. ZOFRAN [Concomitant]
  4. DECADRON [Concomitant]

REACTIONS (2)
  - DIARRHOEA [None]
  - PYREXIA [None]
